FAERS Safety Report 8980529 (Version 2)
Quarter: 2012Q4

REPORT INFORMATION
  Report Type: 
  Country: US (occurrence: US)
  Receive Date: 20121221
  Receipt Date: 20121227
  Transmission Date: 20130627
  Serious: Yes (Other)
  Sender: FDA-Public Use
  Company Number: US-PERRIGO-12US010686

PATIENT
  Age: 11 Year
  Sex: Male
  Weight: 51.25 kg

DRUGS (4)
  1. ACETAMINOPHEN [Suspect]
     Indication: PYREXIA
     Dosage: 400 mg, single, in the morning
     Route: 048
     Dates: start: 20121202, end: 20121202
  2. ACETAMINOPHEN [Suspect]
     Indication: NECK PAIN
     Dosage: 400 mg, single, at 1230
     Route: 048
     Dates: start: 20121203, end: 20121203
  3. ACETAMINOPHEN CHILD BUBBLEGUM 32 MG/ML [Suspect]
     Dosage: 400 mg, single, at 1745
     Route: 048
     Dates: start: 20121210, end: 20121210
  4. MOTRIN CHILDREN [Suspect]
     Indication: PYREXIA
     Dosage: UNK, two doses
     Route: 048
     Dates: start: 20121202, end: 20121202

REACTIONS (9)
  - Hypersensitivity [Recovered/Resolved]
  - Eyelid oedema [Recovered/Resolved]
  - Pruritus [Recovered/Resolved]
  - Skin burning sensation [Recovered/Resolved]
  - Erythema [Recovered/Resolved]
  - Blister [Recovered/Resolved]
  - Skin warm [Recovered/Resolved]
  - Underdose [Recovered/Resolved]
  - Incorrect storage of drug [Unknown]
